FAERS Safety Report 14656451 (Version 1)
Quarter: 2018Q1

REPORT INFORMATION
  Report Type: Spontaneous
  Country: KR (occurrence: KR)
  Receive Date: 20180319
  Receipt Date: 20180319
  Transmission Date: 20180509
  Serious: Yes (Other)
  Sender: FDA-Public Use
  Company Number: PHHY2018KR039609

PATIENT
  Age: 49 Year
  Sex: Female

DRUGS (1)
  1. PAZOPANIB [Suspect]
     Active Substance: PAZOPANIB
     Indication: LEIOMYOSARCOMA
     Dosage: 800 MG, QD
     Route: 065

REACTIONS (10)
  - Haemorrhage [Unknown]
  - Asthenia [Unknown]
  - Pulmonary mass [Unknown]
  - Leiomyosarcoma [Unknown]
  - Skin disorder [Unknown]
  - Infection [Unknown]
  - Pleural effusion [Unknown]
  - Blood pressure increased [Unknown]
  - Malignant neoplasm progression [Unknown]
  - Pain [Unknown]
